FAERS Safety Report 9633215 (Version 1)
Quarter: 2013Q4

REPORT INFORMATION
  Report Type: Spontaneous
  Country: US (occurrence: None)
  Receive Date: 20131018
  Receipt Date: 20131018
  Transmission Date: 20140711
  Serious: Yes (Other)
  Sender: FDA-Public Use
  Company Number: None

PATIENT
  Age: 60 Year
  Sex: Female
  Weight: 114.76 kg

DRUGS (2)
  1. LAMOTRIGINE [Suspect]
     Indication: BIPOLAR DISORDER
     Dosage: 1 PILL QAM AND 3 PILLS QHS
     Route: 048
     Dates: start: 20130929, end: 20131102
  2. LAMOTRIGINE [Suspect]
     Indication: MOOD ALTERED
     Dosage: 1 PILL QAM AND 3 PILLS QHS
     Route: 048
     Dates: start: 20130929, end: 20131102

REACTIONS (2)
  - Headache [None]
  - Product formulation issue [None]
